FAERS Safety Report 12088339 (Version 1)
Quarter: 2016Q1

REPORT INFORMATION
  Report Type: Spontaneous
  Country: GB (occurrence: GB)
  Receive Date: 20160218
  Receipt Date: 20160218
  Transmission Date: 20160526
  Serious: Yes (Congenital Anomaly)
  Sender: FDA-Public Use
  Company Number: GB-ASTRAZENECA-2016SE14759

PATIENT

DRUGS (4)
  1. BRICANYL [Suspect]
     Active Substance: TERBUTALINE SULFATE
     Dosage: 500MICROGRAMS/DOSE, 2DS AS REQUIRED
     Route: 064
  2. MONTELUKAST [Suspect]
     Active Substance: MONTELUKAST SODIUM
     Route: 064
  3. CETIRIZINE [Suspect]
     Active Substance: CETIRIZINE HYDROCHLORIDE
     Route: 064
  4. SYMBICORT [Suspect]
     Active Substance: BUDESONIDE\FORMOTEROL FUMARATE DIHYDRATE
     Dosage: 200/6 MCG ONE OR TWO PUFFS TWICE A DAY
     Route: 064

REACTIONS (1)
  - Limb reduction defect [Not Recovered/Not Resolved]

NARRATIVE: CASE EVENT DATE: 20160115
